FAERS Safety Report 10392366 (Version 1)
Quarter: 2014Q3

REPORT INFORMATION
  Report Type: Spontaneous
  Country: US (occurrence: None)
  Receive Date: 20140815
  Receipt Date: 20140815
  Transmission Date: 20150326
  Serious: No
  Sender: FDA-Public Use
  Company Number: 2014-13099

PATIENT
  Age: 53 Year
  Sex: Male

DRUGS (1)
  1. TRAMADOL HYDROCHLORIDE (WATSON LABORATORIES) (TRAMADOL HYDROCHLORIDE) TABLET, 50MG [Suspect]
     Active Substance: TRAMADOL HYDROCHLORIDE
     Indication: BACK PAIN

REACTIONS (4)
  - Feeling abnormal [None]
  - Insomnia [None]
  - Fatigue [None]
  - Asthenia [None]
